FAERS Safety Report 11916071 (Version 1)
Quarter: 2016Q1

REPORT INFORMATION
  Report Type: Spontaneous
  Country: AE (occurrence: AE)
  Receive Date: 20160114
  Receipt Date: 20160114
  Transmission Date: 20160526
  Serious: Yes (Other)
  Sender: FDA-Public Use
  Company Number: AE-BEH-2016057633

PATIENT
  Age: 33 Year
  Sex: Male

DRUGS (9)
  1. INTRAVENOUS IMMUNOGLOBULIN [Suspect]
     Active Substance: HUMAN IMMUNOGLOBULIN G
     Indication: GUILLAIN-BARRE SYNDROME
  2. RIFAMPICIN [Suspect]
     Active Substance: RIFAMPIN
  3. ETHAMBUTOL [Suspect]
     Active Substance: ETHAMBUTOL HYDROCHLORIDE
  4. CEFTRIAXONE. [Suspect]
     Active Substance: CEFTRIAXONE
  5. ISONIAZID. [Suspect]
     Active Substance: ISONIAZID
  6. PYRAZINAMIDE. [Suspect]
     Active Substance: PYRAZINAMIDE
  7. VANCOMYCIN [Suspect]
     Active Substance: VANCOMYCIN
  8. INTRAVENOUS IMMUNOGLOBULIN [Suspect]
     Active Substance: HUMAN IMMUNOGLOBULIN G
     Indication: GUILLAIN-BARRE SYNDROME
  9. AMPICILLIN [Suspect]
     Active Substance: AMPICILLIN

REACTIONS (2)
  - Drug ineffective [Unknown]
  - Central nervous system lesion [Unknown]
